FAERS Safety Report 26195886 (Version 1)
Quarter: 2025Q4

REPORT INFORMATION
  Report Type: Spontaneous
  Country: US (occurrence: US)
  Receive Date: 20251224
  Receipt Date: 20251224
  Transmission Date: 20260117
  Serious: No
  Sender: CELLTRION
  Company Number: US-CELLTRION INC.-2025US030899

PATIENT

DRUGS (3)
  1. RITUXIMAB [Suspect]
     Active Substance: RITUXIMAB
     Indication: Fibrillary glomerulonephritis
     Dosage: 375 MG/M2 IV WEEKLY X 4 DOSES (STANDARD INDUCTION COURSE)
     Route: 042
  2. PREDNISONE [Suspect]
     Active Substance: PREDNISONE
     Indication: Fibrillary glomerulonephritis
     Dosage: 1 MG/KG/DAY (TYPICALLY 60 MG DAILY)
  3. PREDNISONE [Suspect]
     Active Substance: PREDNISONE
     Dosage: SLOW TAPER OVER 10 MONTHS

REACTIONS (1)
  - Drug effective for unapproved indication [Unknown]
